FAERS Safety Report 18168882 (Version 1)
Quarter: 2020Q3

REPORT INFORMATION
  Report Type: Spontaneous
  Country: US (occurrence: US)
  Receive Date: 20200818
  Receipt Date: 20200818
  Transmission Date: 20201103
  Serious: Yes (Other)
  Sender: FDA-Public Use
  Company Number: None

PATIENT
  Age: 12 Year
  Sex: Male

DRUGS (5)
  1. STRATTERA [Suspect]
     Active Substance: ATOMOXETINE HYDROCHLORIDE
     Indication: ATTENTION DEFICIT HYPERACTIVITY DISORDER
     Dates: start: 20191201
  2. COCHLEAR IMPLANT [Concomitant]
  3. STRATTERA [Suspect]
     Active Substance: ATOMOXETINE HYDROCHLORIDE
     Indication: HYPOACUSIS
     Dates: start: 20191201
  4. GUANFACINE. [Suspect]
     Active Substance: GUANFACINE
  5. HEARING AID [Concomitant]

REACTIONS (9)
  - Sedation [None]
  - Dehydration [None]
  - Pain [None]
  - Vision blurred [None]
  - Nausea [None]
  - Balance disorder [None]
  - Headache [None]
  - Dizziness [None]
  - Hypersensitivity [None]

NARRATIVE: CASE EVENT DATE: 20200816
